FAERS Safety Report 18683158 (Version 1)
Quarter: 2020Q4

REPORT INFORMATION
  Report Type: Spontaneous
  Country: US (occurrence: US)
  Receive Date: 20201230
  Receipt Date: 20201230
  Transmission Date: 20210114
  Serious: Yes (Other)
  Sender: FDA-Public Use
  Company Number: US-MYLANLABS-2020M1105020

PATIENT
  Age: 44 Year
  Sex: Male

DRUGS (15)
  1. CLOPIDOGREL [Concomitant]
     Active Substance: CLOPIDOGREL BISULFATE
     Indication: PRODUCT USED FOR UNKNOWN INDICATION
     Dosage: 75 MILLIGRAM, QD
     Route: 065
     Dates: start: 2018
  2. VITAMIN C [Concomitant]
     Active Substance: ASCORBIC ACID
     Indication: MYOPATHY
     Dosage: 500 MILLIGRAM, QD
     Route: 065
     Dates: start: 2018
  3. VITAMIN C [Concomitant]
     Active Substance: ASCORBIC ACID
     Indication: PAIN IN EXTREMITY
  4. ROSUVASTATIN. [Suspect]
     Active Substance: ROSUVASTATIN
     Indication: HYPERLIPIDAEMIA
     Dosage: 20 MILLIGRAM, QD
     Route: 065
     Dates: start: 2018
  5. ASPIRIN                            /00002701/ [Concomitant]
     Active Substance: ASPIRIN
     Indication: DRUG THERAPY
     Dosage: 81 MILLIGRAM, QD
     Route: 065
     Dates: start: 2015
  6. WARFARIN [Concomitant]
     Active Substance: WARFARIN
     Dosage: 7.5 MILLIGRAM, QD
     Route: 065
     Dates: start: 2018
  7. METOPROLOL. [Suspect]
     Active Substance: METOPROLOL
     Indication: DRUG THERAPY
     Dosage: 25 MILLIGRAM, BID
     Route: 065
     Dates: start: 2015, end: 2015
  8. ATORVASTATIN [Suspect]
     Active Substance: ATORVASTATIN
     Indication: HYPERLIPIDAEMIA
     Dosage: 20 MILLIGRAM, QD
     Route: 065
     Dates: start: 2015, end: 2015
  9. COENZYME Q10 [Concomitant]
     Active Substance: DIETARY SUPPLEMENT\UBIDECARENONE
     Indication: MYOPATHY
     Dosage: 200 MILLIGRAM, QD
     Route: 065
     Dates: start: 2018
  10. COENZYME Q10 [Concomitant]
     Active Substance: DIETARY SUPPLEMENT\UBIDECARENONE
     Indication: PAIN IN EXTREMITY
  11. WARFARIN [Concomitant]
     Active Substance: WARFARIN
     Indication: DRUG THERAPY
     Dosage: 5 MILLIGRAM, QD
     Route: 065
     Dates: start: 2015
  12. AMIODARONE [Concomitant]
     Active Substance: AMIODARONE
     Indication: DRUG THERAPY
     Dosage: 200 MILLIGRAM, BID
     Route: 065
     Dates: start: 2015, end: 2015
  13. VITAMIN D3 [Concomitant]
     Active Substance: CHOLECALCIFEROL
     Indication: MYOPATHY
     Dosage: 2000 INTERNATIONAL UNIT, QD
     Route: 065
     Dates: start: 2018
  14. VITAMIN D3 [Concomitant]
     Active Substance: CHOLECALCIFEROL
     Indication: PAIN IN EXTREMITY
  15. ATORVASTATIN [Suspect]
     Active Substance: ATORVASTATIN
     Dosage: 200 MILLIGRAM, QOD
     Route: 065

REACTIONS (4)
  - Fatigue [Unknown]
  - Bradycardia [Unknown]
  - Myopathy [Recovered/Resolved]
  - Pain in extremity [Recovered/Resolved]

NARRATIVE: CASE EVENT DATE: 2015
